FAERS Safety Report 8525752-0 (Version None)
Quarter: 2012Q3

REPORT INFORMATION
  Report Type: 
  Country: None (occurrence: None)
  Receive Date: 20120720
  Receipt Date: 20120703
  Transmission Date: 20120928
  Serious: Yes (Hospitalization)
  Sender: FDA-Public Use
  Company Number: JP-009507513-1204USA00875

PATIENT

DRUGS (23)
  1. SITAGLIPTIN PHOSPHATE [Suspect]
     Indication: TYPE 2 DIABETES MELLITUS
     Dosage: 50 MG, QD
     Route: 048
  2. ETIZOLAM [Concomitant]
  3. LEVOMEPROMAZINE MALEATE [Concomitant]
  4. SENNA-MINT WAF [Concomitant]
  5. TAKA-DIASTASE [Concomitant]
  6. VALPROATE SODIUM [Concomitant]
  7. LOXOPROFEN SODIUM [Concomitant]
  8. ERGOTAMINE TARTRATE [Concomitant]
  9. RISPERIDONE [Concomitant]
  10. LORAZEPAM [Concomitant]
  11. BEZAFIBRATE [Concomitant]
  12. ALLOPURINOL [Concomitant]
  13. CODEINE SULFATE [Concomitant]
  14. THEOPHYLLINE [Concomitant]
  15. LACTOMIN [Concomitant]
  16. LOPERAMIDE HCL [Concomitant]
  17. PAROXETINE HYDROCHLORIDE [Concomitant]
  18. NITRAZEPAM [Concomitant]
  19. TIZANIDINE HYDROCHLORIDE [Concomitant]
  20. ATENOLOL [Concomitant]
  21. TOPIRAMATE [Concomitant]
  22. MINOCYCLINE HYDROCHLORIDE [Concomitant]
  23. MAGNESIUM OXIDE [Concomitant]

REACTIONS (11)
  - RHABDOMYOLYSIS [None]
  - HYPOXIA [None]
  - ALTERED STATE OF CONSCIOUSNESS [None]
  - PYREXIA [None]
  - ANURIA [None]
  - PALLIDOTOMY [None]
  - RENAL FAILURE ACUTE [None]
  - ACIDOSIS [None]
  - RESPIRATORY DISORDER [None]
  - DECUBITUS ULCER [None]
  - PNEUMONIA ASPIRATION [None]
